FAERS Safety Report 13592168 (Version 1)
Quarter: 2017Q2

REPORT INFORMATION
  Report Type: Report from Study
  Country: BR (occurrence: BR)
  Receive Date: 20170530
  Receipt Date: 20170530
  Transmission Date: 20170830
  Serious: Yes (Other)
  Sender: FDA-Public Use
  Company Number: BR-ALEXION-A201705730

PATIENT
  Sex: Female

DRUGS (2)
  1. SOLIRIS [Suspect]
     Active Substance: ECULIZUMAB
     Dosage: 900 MG, UNK
     Route: 042
  2. SOLIRIS [Suspect]
     Active Substance: ECULIZUMAB
     Indication: PAROXYSMAL NOCTURNAL HAEMOGLOBINURIA
     Dosage: 600 MG, UNK
     Route: 042
     Dates: start: 20130626

REACTIONS (6)
  - Blood lactate dehydrogenase increased [Unknown]
  - Thrombocytopenia [Unknown]
  - Haptoglobin decreased [Unknown]
  - Thrombotic microangiopathy [Unknown]
  - Renal failure [Unknown]
  - Haemolytic uraemic syndrome [Unknown]
